FAERS Safety Report 21228016 (Version 1)
Quarter: 2022Q3

REPORT INFORMATION
  Report Type: Spontaneous
  Country: US (occurrence: None)
  Receive Date: 20220817
  Receipt Date: 20220817
  Transmission Date: 20221027
  Serious: Yes (Other)
  Sender: FDA-Public Use
  Company Number: None

PATIENT
  Age: 70 Year
  Sex: Male

DRUGS (15)
  1. AMBRISENTAN [Suspect]
     Active Substance: AMBRISENTAN
     Indication: Pulmonary arterial hypertension
     Dosage: 10MG QD ORAL?
     Route: 048
     Dates: start: 20220317
  2. SELEXIPAG [Concomitant]
     Active Substance: SELEXIPAG
  3. XARELTO [Concomitant]
     Active Substance: RIVAROXABAN
  4. OMEPRAZOLE [Concomitant]
     Active Substance: OMEPRAZOLE
  5. NORCO [Concomitant]
     Active Substance: ACETAMINOPHEN\HYDROCODONE BITARTRATE
  6. GABAPENTIN [Concomitant]
     Active Substance: GABAPENTIN
  7. Isorsorbide mononitrate [Concomitant]
  8. ATORVASTATIN [Concomitant]
     Active Substance: ATORVASTATIN
  9. FAMOTIDINE [Concomitant]
     Active Substance: FAMOTIDINE
  10. Sacralfate [Concomitant]
  11. ASPIRIN [Concomitant]
     Active Substance: ASPIRIN
  12. Alvesco HFA [Concomitant]
  13. LACTULOSE [Concomitant]
     Active Substance: LACTULOSE
  14. TYLENOL [Concomitant]
     Active Substance: ACETAMINOPHEN
  15. ALBUTEROL SULFATE [Concomitant]
     Active Substance: ALBUTEROL SULFATE

REACTIONS (9)
  - Haematuria [None]
  - Catheter site haemorrhage [None]
  - Acute kidney injury [None]
  - Urinary tract obstruction [None]
  - Urinary tract infection [None]
  - Chest pain [None]
  - Dyspnoea [None]
  - Sinus bradycardia [None]
  - Bundle branch block right [None]

NARRATIVE: CASE EVENT DATE: 20220716
